FAERS Safety Report 10177827 (Version 1)
Quarter: 2014Q2

REPORT INFORMATION
  Report Type: Spontaneous
  Country: US (occurrence: US)
  Receive Date: 20140516
  Receipt Date: 20140516
  Transmission Date: 20141212
  Serious: No
  Sender: FDA-Public Use
  Company Number: US-SA-2013SA118169

PATIENT
  Age: 66 Year
  Sex: Female

DRUGS (2)
  1. APIDRA SOLOSTAR [Suspect]
     Indication: TYPE 2 DIABETES MELLITUS
     Dosage: 14 TO 18 UNITS 3 TIMES DAILY.
     Route: 058
     Dates: start: 201302
  2. SOLOSTAR [Concomitant]
     Dates: start: 201302

REACTIONS (3)
  - Dizziness [Not Recovered/Not Resolved]
  - Injury associated with device [Unknown]
  - Blood glucose decreased [Not Recovered/Not Resolved]
